FAERS Safety Report 9869421 (Version 4)
Quarter: 2014Q1

REPORT INFORMATION
  Report Type: Spontaneous
  Country: JP (occurrence: JP)
  Receive Date: 20140205
  Receipt Date: 20140318
  Transmission Date: 20141002
  Serious: Yes (Death)
  Sender: FDA-Public Use
  Company Number: JP-ELI_LILLY_AND_COMPANY-JP201401010877

PATIENT
  Sex: Male
  Weight: 63.5 kg

DRUGS (10)
  1. ZYPREXA [Suspect]
     Indication: SCHIZOPHRENIA
     Dosage: 10 MG, QD
     Route: 048
  2. ZYPREXA [Suspect]
     Dosage: 15 MG, QD
     Route: 048
  3. HALOPERIDOL [Concomitant]
     Indication: SCHIZOPHRENIA
     Dosage: 25 MG, MONTHLY (1/M)
     Route: 030
  4. HALOPERIDOL [Concomitant]
     Dosage: 50 MG, MONTHLY (1/M)
  5. HALOPERIDOL [Concomitant]
     Dosage: 100 MG, MONTHLY (1/M)
  6. FLUNITRAZEPAM [Concomitant]
     Indication: INSOMNIA
     Dosage: 1 MG, OTHER
  7. NITRAZEPAM [Concomitant]
     Indication: PRODUCT USED FOR UNKNOWN INDICATION
     Dosage: UNK
  8. RISPERIDONE [Concomitant]
     Indication: INSOMNIA
     Dosage: 2 MG, OTHER
  9. LOXOPROFEN [Concomitant]
     Indication: PRODUCT USED FOR UNKNOWN INDICATION
  10. SENNOSIDE [Concomitant]
     Indication: CONSTIPATION
     Dosage: 12 MG, UNKNOWN

REACTIONS (1)
  - Water intoxication [Fatal]
